FAERS Safety Report 11832792 (Version 1)
Quarter: 2015Q4

REPORT INFORMATION
  Report Type: Spontaneous
  Country: US (occurrence: US)
  Receive Date: 20151214
  Receipt Date: 20151214
  Transmission Date: 20160305
  Serious: No
  Sender: FDA-Public Use
  Company Number: US-GLAXOSMITHKLINE-US2015GSK170757

PATIENT
  Sex: Female

DRUGS (1)
  1. ACITRETIN CAPSULE [Suspect]
     Active Substance: ACITRETIN
     Indication: PSORIASIS
     Dosage: 25 MG, UNK
     Dates: start: 20150928

REACTIONS (1)
  - Chronic sinusitis [Unknown]
